FAERS Safety Report 6666318-7 (Version None)
Quarter: 2010Q2

REPORT INFORMATION
  Report Type: 
  Country: None (occurrence: None)
  Receive Date: 20100402
  Receipt Date: 20100324
  Transmission Date: 20101027
  Serious: Yes (Hospitalization)
  Sender: FDA-Public Use
  Company Number: IT-ELI_LILLY_AND_COMPANY-IT201003006652

PATIENT
  Sex: Male

DRUGS (16)
  1. PROZAC [Suspect]
     Dosage: 10 MG, DAILY (1/D)
     Route: 048
     Dates: start: 20091001
  2. SELOKEN /00376902/ [Concomitant]
     Dosage: 50 MG, DAILY (1/D)
     Route: 048
     Dates: start: 20100311, end: 20100301
  3. SELOKEN /00376902/ [Concomitant]
     Dosage: UNK D/F, DAILY (1/D)
     Route: 048
     Dates: start: 20100301
  4. REMERON [Concomitant]
     Dosage: 30 MG, DAILY (1/D)
     Route: 048
     Dates: start: 20091001
  5. NEURONTIN [Concomitant]
     Dosage: 300 MG, UNK
  6. RIVOTRIL [Concomitant]
     Dosage: 3 UNK, UNK
     Route: 048
  7. TRIATEC [Concomitant]
     Dosage: 5 MG, UNK
  8. ASPIRIN [Concomitant]
     Dosage: 100 MG, UNK
     Route: 048
  9. TOTALIP [Concomitant]
  10. NOVONORM [Concomitant]
  11. OMEPRAZEN [Concomitant]
  12. CARVASIN [Concomitant]
  13. DISIPAL [Concomitant]
  14. PLAVIX [Concomitant]
  15. LORAZEPAM [Concomitant]
  16. CLOPIXOL [Concomitant]

REACTIONS (4)
  - DRUG INTERACTION [None]
  - EXTRAPYRAMIDAL DISORDER [None]
  - HYPOKINESIA [None]
  - SINUS BRADYCARDIA [None]
